FAERS Safety Report 8174332-8 (Version None)
Quarter: 2012Q1

REPORT INFORMATION
  Report Type: 
  Country: None (occurrence: None)
  Receive Date: 20120229
  Receipt Date: 20120223
  Transmission Date: 20120608
  Serious: Yes (Other)
  Sender: FDA-Public Use
  Company Number: US-BAYER-200939576NA

PATIENT
  Age: 70 Year
  Sex: Male
  Weight: 81.633 kg

DRUGS (22)
  1. VANCOMYCIN [Concomitant]
  2. HEPARIN [Concomitant]
     Dosage: 41000 U, UNK
     Dates: start: 20060413, end: 20060413
  3. INSULIN 2 [Concomitant]
     Dosage: 5 U, UNK
     Dates: start: 20060413, end: 20060413
  4. TRASYLOL [Suspect]
     Indication: AORTIC VALVE REPLACEMENT
  5. PAVULON [Concomitant]
     Dosage: UNK
     Dates: start: 20060413, end: 20060413
  6. ETOMIDATE [Concomitant]
     Dosage: UNK
     Dates: start: 20060413, end: 20060413
  7. ASPIRIN [Concomitant]
  8. NEOSYNEPHRINE BADRIAL [Concomitant]
     Dosage: UNK
     Dates: start: 20060413, end: 20060413
  9. TRASYLOL [Suspect]
     Indication: PHLEBECTOMY
  10. PEPCID AC [Concomitant]
  11. VERSED [Concomitant]
     Dosage: UNK
     Dates: start: 20060413, end: 20060413
  12. FENTANYL [Concomitant]
     Dosage: UNK
     Dates: start: 20060413, end: 20060413
  13. TRASYLOL [Suspect]
     Indication: CORONARY ARTERY BYPASS
     Dosage: 1 ML OF TEST DOSE, 200 ML OF LOADING DOSE FOLLOWED BY UNKNOWN INFUSION RATE.
     Route: 042
     Dates: start: 20060413, end: 20060413
  14. REGLAN [Concomitant]
  15. ATENOLOL [Concomitant]
  16. PROTAMINE SULFATE [Concomitant]
  17. DOPAMINE HCL [Concomitant]
     Dosage: UNK
     Dates: start: 20060413, end: 20060413
  18. CARDIOPLEGIA [Concomitant]
     Dosage: UNK
     Dates: start: 20060413, end: 20060413
  19. ZOCOR [Concomitant]
  20. MICARDIS [Concomitant]
  21. PLATELETS [Concomitant]
     Dosage: 10 U, UNK
     Route: 042
     Dates: start: 20060413, end: 20060413
  22. RED BLOOD CELLS [Concomitant]
     Dosage: 1 U, UNK
     Route: 042
     Dates: start: 20060413, end: 20060413

REACTIONS (5)
  - UNEVALUABLE EVENT [None]
  - RENAL FAILURE [None]
  - INJURY [None]
  - PAIN [None]
  - RENAL FAILURE ACUTE [None]
